FAERS Safety Report 5601088-2 (Version None)
Quarter: 2008Q1

REPORT INFORMATION
  Report Type: 
  Country: None (occurrence: None)
  Receive Date: 20080124
  Receipt Date: 20080115
  Transmission Date: 20080703
  Serious: Yes (Other)
  Sender: FDA-Public Use
  Company Number: US-ASTRAZENECA-2006UW21263

PATIENT
  Age: 18214 Day
  Sex: Female
  Weight: 86.4 kg

DRUGS (2)
  1. SEROQUEL [Suspect]
     Indication: INSOMNIA
     Dosage: 200 MG - 800 MG
     Route: 048
     Dates: start: 20020801, end: 20060113
  2. METHADONE (PRESCRIBED) [Concomitant]
     Route: 048
     Dates: start: 20060101

REACTIONS (3)
  - CHEST PAIN [None]
  - DIABETES MELLITUS [None]
  - DIABETIC NEUROPATHY [None]
